FAERS Safety Report 16722782 (Version 3)
Quarter: 2023Q4

REPORT INFORMATION
  Report Type: Report from Study
  Country: JP (occurrence: JP)
  Receive Date: 20190821
  Receipt Date: 20231025
  Transmission Date: 20240110
  Serious: Yes (Death, Other)
  Sender: FDA-Public Use
  Company Number: JP-ABBVIE-17K-087-2181150-00

PATIENT
  Age: 69 Year
  Sex: Male
  Weight: 63 kg

DRUGS (10)
  1. CARBIDOPA\LEVODOPA [Suspect]
     Active Substance: CARBIDOPA\LEVODOPA
     Indication: Parkinson^s disease
     Dosage: MD 4 ML, CD 2 ML/HRS ? 16 HRS, ED 1 ML/TIMES ? ONCE TO TWICE
     Route: 050
     Dates: start: 20170925, end: 20171002
  2. CARBIDOPA\LEVODOPA [Suspect]
     Active Substance: CARBIDOPA\LEVODOPA
     Dosage: MD 7 ML, CD 2 ML/HRS ? 16 HRS, ED 1 ML/TIMES ? ONCE TO TWICE
     Route: 050
     Dates: start: 20171002, end: 20171115
  3. CARBIDOPA\LEVODOPA [Suspect]
     Active Substance: CARBIDOPA\LEVODOPA
     Dosage: MD 7 ML, CD 2 ML/HRS ? 16 HRS, ED 1 ML/TIMES ? ONCE TO TWICE
     Route: 050
     Dates: start: 20171115, end: 201908
  4. CARBIDOPA\LEVODOPA [Concomitant]
     Active Substance: CARBIDOPA\LEVODOPA
     Indication: Parkinson^s disease
     Route: 048
     Dates: start: 2007
  5. CARBIDOPA\LEVODOPA [Concomitant]
     Active Substance: CARBIDOPA\LEVODOPA
     Indication: Parkinson^s disease
     Route: 048
     Dates: start: 20171007, end: 201908
  6. NEUPRO [Concomitant]
     Active Substance: ROTIGOTINE
     Indication: Parkinson^s disease
     Route: 062
     Dates: end: 201908
  7. RIVOTRIL [Concomitant]
     Active Substance: CLONAZEPAM
     Indication: Product used for unknown indication
     Dates: end: 201908
  8. MAGNESIUM OXIDE [Concomitant]
     Active Substance: MAGNESIUM OXIDE
     Indication: Product used for unknown indication
     Route: 048
     Dates: end: 201908
  9. AMANTADINE HCL NICHIIKO [Concomitant]
     Indication: Parkinson^s disease
     Route: 048
     Dates: start: 20180926, end: 201908
  10. AMANTADINE HCL NICHIIKO [Concomitant]
     Indication: Parkinson^s disease
     Route: 048
     Dates: start: 20180723, end: 20180925

REACTIONS (8)
  - Asphyxia [Fatal]
  - Fall [Unknown]
  - Stoma site discharge [Recovered/Resolved]
  - Intentional medical device removal by patient [Unknown]
  - Device connection issue [Recovered/Resolved]
  - Expired product administered [Unknown]
  - On and off phenomenon [Not Recovered/Not Resolved]
  - Device issue [Unknown]

NARRATIVE: CASE EVENT DATE: 20171121
